FAERS Safety Report 23194584 (Version 1)
Quarter: 2023Q4

REPORT INFORMATION
  Report Type: Spontaneous
  Country: US (occurrence: US)
  Receive Date: 20231117
  Receipt Date: 20231117
  Transmission Date: 20240109
  Serious: No
  Sender: FDA-Public Use
  Company Number: US-GSK-US2023154506

PATIENT
  Age: 79 Year
  Sex: Female

DRUGS (10)
  1. TRELEGY ELLIPTA [Suspect]
     Active Substance: FLUTICASONE FUROATE\UMECLIDINIUM BROMIDE\VILANTEROL TRIFENATATE
     Indication: Chronic obstructive pulmonary disease
     Dosage: 1 PUFF(S), QD 200-62.5-25MCG/ACT AER
     Dates: start: 20230610
  2. TRELEGY ELLIPTA [Suspect]
     Active Substance: FLUTICASONE FUROATE\UMECLIDINIUM BROMIDE\VILANTEROL TRIFENATATE
     Indication: Pneumonia
  3. LASIX [Concomitant]
     Active Substance: FUROSEMIDE
     Indication: Menopause
     Dosage: UNK
  4. LASIX [Concomitant]
     Active Substance: FUROSEMIDE
     Indication: Peripheral swelling
  5. NORETHINDRONE ACETATE [Concomitant]
     Active Substance: NORETHINDRONE ACETATE
     Indication: Menopause
     Dosage: UNK
  6. NORETHINDRONE ACETATE [Concomitant]
     Active Substance: NORETHINDRONE ACETATE
     Indication: Peripheral swelling
  7. ESTRADIOL [Concomitant]
     Active Substance: ESTRADIOL
     Indication: Menopause
     Dosage: UNK
  8. ESTRADIOL [Concomitant]
     Active Substance: ESTRADIOL
     Indication: Peripheral swelling
  9. ALBUTEROL [Concomitant]
     Active Substance: ALBUTEROL
     Indication: Peripheral swelling
     Dosage: UNK
  10. ALBUTEROL [Concomitant]
     Active Substance: ALBUTEROL
     Indication: Menopause

REACTIONS (4)
  - Dry skin [Not Recovered/Not Resolved]
  - Skin exfoliation [Unknown]
  - Candida infection [Unknown]
  - Tongue coated [Unknown]

NARRATIVE: CASE EVENT DATE: 20230915
